FAERS Safety Report 13044282 (Version 1)
Quarter: 2016Q4

REPORT INFORMATION
  Report Type: Spontaneous
  Country: US (occurrence: US)
  Receive Date: 20161220
  Receipt Date: 20161220
  Transmission Date: 20170207
  Serious: Yes (Other)
  Sender: FDA-Public Use
  Company Number: US-ROCHE-1034536

PATIENT
  Sex: Male
  Weight: 87.17 kg

DRUGS (5)
  1. LEVOTHYROXINE. [Concomitant]
     Active Substance: LEVOTHYROXINE
     Indication: THYROID DISORDER
     Route: 048
  2. DOXYCYCLINE. [Concomitant]
     Active Substance: DOXYCYCLINE
     Route: 048
  3. ZELBORAF [Suspect]
     Active Substance: VEMURAFENIB
     Indication: MALIGNANT MELANOMA
     Route: 048
     Dates: start: 20111228
  4. ASA [Concomitant]
     Active Substance: ASPIRIN
     Route: 048
  5. ZELBORAF [Suspect]
     Active Substance: VEMURAFENIB
     Route: 048
     Dates: start: 20120113

REACTIONS (10)
  - Rash [Recovered/Resolved]
  - Arthralgia [Unknown]
  - Skin papilloma [Unknown]
  - Skin cancer [Unknown]
  - Myalgia [Unknown]
  - Sunburn [Recovered/Resolved]
  - Mass [Unknown]
  - Fatigue [Unknown]
  - Erythema [Unknown]
  - Pruritus [Unknown]
